FAERS Safety Report 22191759 (Version 1)
Quarter: 2023Q2

REPORT INFORMATION
  Report Type: Spontaneous
  Country: SK (occurrence: SK)
  Receive Date: 20230410
  Receipt Date: 20230410
  Transmission Date: 20230722
  Serious: Yes (Hospitalization, Other)
  Sender: FDA-Public Use
  Company Number: SK-AOP-2023000179

PATIENT
  Age: 41 Year
  Sex: Male
  Weight: 102 kg

DRUGS (3)
  1. ANAGRELIDE [Suspect]
     Active Substance: ANAGRELIDE
     Indication: Primary myelofibrosis
     Dosage: 0.5 MILLIGRAM, Q2D
     Route: 048
     Dates: start: 202212, end: 20230217
  2. BESREMI [Concomitant]
     Active Substance: ROPEGINTERFERON ALFA-2B-NJFT
     Indication: Thrombocytosis
     Dosage: 50 MICROGRAM, Q2W
     Route: 065
     Dates: start: 202201, end: 20230217
  3. ASPIRIN [Concomitant]
     Active Substance: ASPIRIN
     Indication: Thrombocytosis
     Dosage: 100 MILLIGRAM
     Route: 048
     Dates: start: 202111

REACTIONS (3)
  - Liver disorder [Not Recovered/Not Resolved]
  - Pancreatic carcinoma [Unknown]
  - Off label use [Not Recovered/Not Resolved]

NARRATIVE: CASE EVENT DATE: 20221201
